FAERS Safety Report 20653986 (Version 2)
Quarter: 2022Q2

REPORT INFORMATION
  Report Type: Report from Study
  Country: GB (occurrence: GB)
  Receive Date: 20220330
  Receipt Date: 20220509
  Transmission Date: 20220721
  Serious: Yes (Other)
  Sender: FDA-Public Use
  Company Number: GB-MYLANLABS-2022M1013782

PATIENT
  Sex: Male

DRUGS (10)
  1. ROPINIROLE [Suspect]
     Active Substance: ROPINIROLE
     Indication: Product used for unknown indication
     Dosage: UNK
  2. CARBIDOPA\LEVODOPA [Suspect]
     Active Substance: CARBIDOPA\LEVODOPA
     Indication: Parkinson^s disease
     Dosage: UNK (CONTINUOUS RATE 2.9MLS; EXTRA DOSE 1.7MLS)
     Route: 050
  3. CARBIDOPA\LEVODOPA [Suspect]
     Active Substance: CARBIDOPA\LEVODOPA
     Dosage: UNK
     Route: 050
     Dates: start: 20211112
  4. CARBIDOPA\LEVODOPA [Suspect]
     Active Substance: CARBIDOPA\LEVODOPA
     Dosage: UNK (CONTINUOUS RATE 2.7MLS; EXTRA DOSE 1.5MLS)
     Route: 050
  5. CARBIDOPA\LEVODOPA [Suspect]
     Active Substance: CARBIDOPA\LEVODOPA
     Dosage: UNK (CONTINUOUS RATE 3.1 MLS, ED 1.7 MLS, MD 9.0MLS)
     Route: 050
  6. CARBIDOPA\LEVODOPA [Suspect]
     Active Substance: CARBIDOPA\LEVODOPA
     Dosage: UNK, (MD 9.0MLS; CR 3.3MLS; ED 1.9MLS )
     Route: 050
     Dates: start: 20220215
  7. CARBIDOPA\LEVODOPA [Suspect]
     Active Substance: CARBIDOPA\LEVODOPA
     Dosage: UNK
     Route: 050
     Dates: start: 202202
  8. CARBIDOPA\LEVODOPA [Suspect]
     Active Substance: CARBIDOPA\LEVODOPA
     Dosage: UNK (MD INCREASED TO 9.2, CR 3.7, ED 1.9  )
     Dates: start: 2022
  9. AMANTADINE [Concomitant]
     Active Substance: AMANTADINE
     Indication: Product used for unknown indication
     Dosage: 100 MILLIGRAM, BID ((100MG AT 08:00 AND 12:00))
  10. SINEMET [Concomitant]
     Active Substance: CARBIDOPA\LEVODOPA
     Indication: Product used for unknown indication
     Dosage: UNK (200/50MG MR AT 22:00)

REACTIONS (9)
  - Parkinson^s disease [Unknown]
  - Mobility decreased [Recovering/Resolving]
  - Tremor [Unknown]
  - Stoma site infection [Unknown]
  - Dyskinesia [Unknown]
  - Therapeutic product effect incomplete [Unknown]
  - Muscle rigidity [Unknown]
  - Freezing phenomenon [Unknown]
  - Drug ineffective [Not Recovered/Not Resolved]
